FAERS Safety Report 24920871 (Version 2)
Quarter: 2025Q1

REPORT INFORMATION
  Report Type: Report from Study
  Country: US (occurrence: US)
  Receive Date: 20250204
  Receipt Date: 20250216
  Transmission Date: 20250409
  Serious: Yes (Other)
  Sender: ABBVIE
  Company Number: US-ABBVIE-6114842

PATIENT
  Age: 66 Year
  Sex: Male

DRUGS (2)
  1. CREON [Suspect]
     Active Substance: PANCRELIPASE AMYLASE\PANCRELIPASE LIPASE\PANCRELIPASE PROTEASE
     Indication: Hepatitis C
     Dosage: SINGLE PILL TWICE A DAY.?LAST ADMIN DATE : 2023
     Route: 048
     Dates: start: 2023
  2. CREON [Suspect]
     Active Substance: PANCRELIPASE AMYLASE\PANCRELIPASE LIPASE\PANCRELIPASE PROTEASE
     Indication: Hepatitis C
     Route: 048
     Dates: start: 202312, end: 2024

REACTIONS (2)
  - Hepatocellular carcinoma [Not Recovered/Not Resolved]
  - Hypoacusis [Unknown]

NARRATIVE: CASE EVENT DATE: 20240325
